FAERS Safety Report 5324195-0 (Version None)
Quarter: 2007Q2

REPORT INFORMATION
  Report Type: 
  Country: None (occurrence: None)
  Receive Date: 20070514
  Receipt Date: 20070511
  Transmission Date: 20071010
  Serious: Yes (Hospitalization)
  Sender: FDA-Public Use
  Company Number: BE-BRISTOL-MYERS SQUIBB COMPANY-13700638

PATIENT
  Age: 59 Year
  Sex: Male

DRUGS (4)
  1. ABATACEPT [Suspect]
     Indication: RHEUMATOID ARTHRITIS
     Dates: start: 20010326
  2. MEDROL [Concomitant]
  3. NOVONORM [Concomitant]
  4. AVANDIA [Concomitant]

REACTIONS (1)
  - THROMBOSIS [None]
